FAERS Safety Report 8372394-6 (Version None)
Quarter: 2012Q2

REPORT INFORMATION
  Report Type: 
  Country: None (occurrence: None)
  Receive Date: 20120521
  Receipt Date: 20120413
  Transmission Date: 20120825
  Serious: Yes (Hospitalization)
  Sender: FDA-Public Use
  Company Number: JP-JNJFOC-20120407585

PATIENT
  Age: 6 Year
  Sex: Male
  Weight: 24 kg

DRUGS (5)
  1. CONCERTA [Suspect]
     Route: 048
     Dates: start: 20120319, end: 20120408
  2. CONCERTA [Suspect]
     Indication: ATTENTION DEFICIT/HYPERACTIVITY DISORDER
     Route: 048
     Dates: end: 20120318
  3. CONCERTA [Suspect]
     Route: 048
  4. CONCERTA [Suspect]
     Route: 048
     Dates: start: 20120409, end: 20120412
  5. CONCERTA [Suspect]
     Route: 048

REACTIONS (2)
  - GASTROENTERITIS VIRAL [None]
  - HYPERKINESIA [None]
